FAERS Safety Report 7198426-9 (Version None)
Quarter: 2010Q4

REPORT INFORMATION
  Report Type: 
  Country: None (occurrence: None)
  Receive Date: 20101227
  Receipt Date: 20101215
  Transmission Date: 20110411
  Serious: Yes (Hospitalization)
  Sender: FDA-Public Use
  Company Number: PHHY2010IT74758

PATIENT
  Sex: Female

DRUGS (3)
  1. VOLTFAST [Suspect]
     Indication: PAIN IN EXTREMITY
     Dosage: UNK
     Dates: start: 20100108, end: 20100108
  2. EUTIROX [Concomitant]
  3. BUSCOPAN [Concomitant]

REACTIONS (4)
  - ABDOMINAL PAIN LOWER [None]
  - DYSURIA [None]
  - NEPHROLITHIASIS [None]
  - URINOMA [None]
